FAERS Safety Report 16097205 (Version 2)
Quarter: 2019Q1

REPORT INFORMATION
  Report Type: Report from Study
  Country: JP (occurrence: JP)
  Receive Date: 20190320
  Receipt Date: 20190321
  Transmission Date: 20190418
  Serious: Yes (Hospitalization)
  Sender: FDA-Public Use
  Company Number: JP-EISAI MEDICAL RESEARCH-EC-2019-050377

PATIENT
  Age: 61 Year
  Sex: Male
  Weight: 54 kg

DRUGS (10)
  1. FEBURIC [Concomitant]
     Active Substance: FEBUXOSTAT
  2. PERAMPANEL [Suspect]
     Active Substance: PERAMPANEL
     Route: 048
     Dates: start: 20181212, end: 20181218
  3. PERAMPANEL [Suspect]
     Active Substance: PERAMPANEL
     Indication: AMYOTROPHIC LATERAL SCLEROSIS
     Route: 048
     Dates: start: 20181128, end: 20181204
  4. PERAMPANEL [Suspect]
     Active Substance: PERAMPANEL
     Route: 048
     Dates: start: 20190107, end: 20190107
  5. RADICUT [Concomitant]
     Active Substance: EDARAVONE
  6. METHYCOBAL [Concomitant]
     Active Substance: METHYLCOBALAMIN
  7. PERAMPANEL [Suspect]
     Active Substance: PERAMPANEL
     Route: 048
     Dates: start: 20181205, end: 20181211
  8. PERAMPANEL [Suspect]
     Active Substance: PERAMPANEL
     Route: 048
     Dates: start: 20181219, end: 201812
  9. PERAMPANEL [Suspect]
     Active Substance: PERAMPANEL
     Route: 048
     Dates: start: 20181226, end: 20190106
  10. RILUTEK [Concomitant]
     Active Substance: RILUZOLE

REACTIONS (2)
  - Delirium [Recovered/Resolved]
  - Overdose [Recovered/Resolved]

NARRATIVE: CASE EVENT DATE: 20190107
